FAERS Safety Report 18198362 (Version 1)
Quarter: 2020Q3

REPORT INFORMATION
  Report Type: Spontaneous
  Country: FR (occurrence: FR)
  Receive Date: 20200826
  Receipt Date: 20200826
  Transmission Date: 20201103
  Serious: Yes (Other)
  Sender: FDA-Public Use
  Company Number: FR-PFIZER INC-2020327022

PATIENT
  Age: 46 Year
  Sex: Male

DRUGS (1)
  1. LYRICA [Suspect]
     Active Substance: PREGABALIN
     Dosage: 300 MG, DAILY, 600 MG PER DOSE OR 300 MG PER DAY FOR 2 TO 3 DAYS
     Route: 048
     Dates: start: 202003, end: 202007

REACTIONS (3)
  - Intentional product misuse [Recovered/Resolved]
  - Disturbance in social behaviour [Recovered/Resolved]
  - Drug abuse [Recovered/Resolved]

NARRATIVE: CASE EVENT DATE: 202003
